FAERS Safety Report 9632775 (Version 1)
Quarter: 2013Q4

REPORT INFORMATION
  Report Type: Spontaneous
  Country: RU (occurrence: RU)
  Receive Date: 20131018
  Receipt Date: 20131018
  Transmission Date: 20140711
  Serious: Yes (Death)
  Sender: FDA-Public Use
  Company Number: RU-ASTRAZENECA-2013SE76546

PATIENT
  Age: 28887 Day
  Sex: Female
  Weight: 80 kg

DRUGS (10)
  1. BRILINTA [Suspect]
     Indication: ACUTE MYOCARDIAL INFARCTION
     Route: 048
     Dates: start: 20131009, end: 20131013
  2. CLEXANE [Concomitant]
  3. INSULIN [Concomitant]
  4. METOPROLOL [Concomitant]
  5. ENAP [Concomitant]
  6. ATORIS [Concomitant]
  7. PEKTROL [Concomitant]
  8. ACILOC [Concomitant]
  9. CEFTRIAXONE [Concomitant]
  10. CARDIOMAGNYL [Concomitant]

REACTIONS (3)
  - Haemorrhagic stroke [Fatal]
  - Pulmonary oedema [Fatal]
  - Brain herniation [Fatal]
